FAERS Safety Report 9274604 (Version 2)
Quarter: 2013Q2

REPORT INFORMATION
  Report Type: Spontaneous
  Country: US (occurrence: None)
  Receive Date: 20130429
  Receipt Date: 20130429
  Transmission Date: 20140414
  Serious: Yes (Other)
  Sender: FDA-Public Use
  Company Number: USW201304-000038

PATIENT
  Sex: Male

DRUGS (3)
  1. APOKYN (APOMORPHINE HYDROCHLORIDE) (APOMORPHINE HYDROCHLORIDE) [Suspect]
     Indication: PARKINSON^S DISEASE
  2. MIRAPEX (PRAMIPEXOLE) (PRAMIPEXOLE) [Concomitant]
  3. SINEMET (CARBIDOPA-LEVODOPA) (CARBIDOPA-LEVODOPA) [Concomitant]

REACTIONS (1)
  - Musculoskeletal stiffness [None]
